FAERS Safety Report 16031840 (Version 1)
Quarter: 2019Q1

REPORT INFORMATION
  Report Type: Spontaneous
  Country: JP (occurrence: JP)
  Receive Date: 20190304
  Receipt Date: 20190304
  Transmission Date: 20190418
  Serious: Yes (Other)
  Sender: FDA-Public Use
  Company Number: JP-009507513-1706JPN002361J

PATIENT
  Sex: Female

DRUGS (3)
  1. FOSAMAC TABLETS 35MG [Suspect]
     Active Substance: ALENDRONATE SODIUM
     Indication: OSTEOPOROSIS
     Dosage: UNK UNK, QW
     Route: 048
     Dates: start: 2017
  2. EDIROL [Concomitant]
     Active Substance: ELDECALCITOL
     Indication: OSTEOPOROSIS
     Dosage: UNK, QD
     Route: 048
  3. FORTEO [Concomitant]
     Active Substance: TERIPARATIDE
     Dosage: UNK
     Route: 065

REACTIONS (4)
  - Oedema peripheral [Unknown]
  - Renal impairment [Recovered/Resolved]
  - Eczema [Unknown]
  - Toothache [Unknown]
